FAERS Safety Report 25284283 (Version 1)
Quarter: 2025Q2

REPORT INFORMATION
  Report Type: Spontaneous
  Country: US (occurrence: US)
  Receive Date: 20250508
  Receipt Date: 20250508
  Transmission Date: 20250717
  Serious: No
  Sender: PFIZER
  Company Number: US-BRISTOL-MYERS SQUIBB COMPANY-2025-064280

PATIENT
  Age: 67 Year
  Sex: Female

DRUGS (5)
  1. ELIQUIS [Interacting]
     Active Substance: APIXABAN
     Dosage: TO BE REDUCED TO 2.5 MG, 2X/DAY
  2. TUKYSA [Interacting]
     Active Substance: TUCATINIB
     Dosage: 300 MG, 2X/DAY
  3. TRAMADOL [Interacting]
     Active Substance: TRAMADOL
  4. AMLODIPINE [Interacting]
     Active Substance: AMLODIPINE BESYLATE
  5. ATORVASTATIN [Interacting]
     Active Substance: ATORVASTATIN

REACTIONS (1)
  - Drug interaction [Unknown]
